FAERS Safety Report 6305616-3 (Version None)
Quarter: 2009Q3

REPORT INFORMATION
  Report Type: 
  Country: None (occurrence: None)
  Receive Date: 20090806
  Receipt Date: 20090713
  Transmission Date: 20100115
  Serious: Yes (Hospitalization)
  Sender: FDA-Public Use
  Company Number: 2009AL005055

PATIENT
  Age: 27 Year
  Sex: Female

DRUGS (4)
  1. IBUPROFEN TABLETS [Suspect]
     Indication: MIGRAINE
     Dosage: PO
     Route: 048
  2. AMITRIPTYLINE [Concomitant]
  3. BETAHISTINE [Concomitant]
  4. CYCLIZINE [Concomitant]

REACTIONS (8)
  - ABASIA [None]
  - ABDOMINAL PAIN UPPER [None]
  - CONSTIPATION [None]
  - DECREASED APPETITE [None]
  - DIZZINESS [None]
  - HAEMATEMESIS [None]
  - RECTAL HAEMORRHAGE [None]
  - VOMITING [None]
